FAERS Safety Report 9816510 (Version 2)
Quarter: 2014Q1

REPORT INFORMATION
  Report Type: Report from Study
  Country: US (occurrence: US)
  Receive Date: 20140114
  Receipt Date: 20140127
  Transmission Date: 20141002
  Serious: Yes (Hospitalization)
  Sender: FDA-Public Use
  Company Number: US-BRISTOL-MYERS SQUIBB COMPANY-19987288

PATIENT
  Sex: 0

DRUGS (7)
  1. BLINDED: NIVOLUMAB [Suspect]
     Indication: METASTATIC MALIGNANT MELANOMA
     Route: 042
     Dates: start: 20131216, end: 20140106
  2. IPILIMUMAB [Suspect]
     Indication: METASTATIC MALIGNANT MELANOMA
     Route: 042
     Dates: start: 20131216, end: 20140106
  3. BLINDED: PLACEBO [Suspect]
     Indication: METASTATIC MALIGNANT MELANOMA
     Route: 042
     Dates: start: 20131216, end: 20140106
  4. TYLENOL [Concomitant]
     Route: 048
  5. IPRATROPIUM + ALBUTEROL [Concomitant]
     Dosage: NEBULISER
  6. LEVAQUIN [Concomitant]
     Dosage: 7 DAYS
  7. ZOSYN [Concomitant]
     Route: 042

REACTIONS (2)
  - Chills [Recovered/Resolved]
  - Hypoxia [Recovering/Resolving]
